FAERS Safety Report 5120162-0 (Version None)
Quarter: 2006Q4

REPORT INFORMATION
  Report Type: 
  Country: None (occurrence: None)
  Receive Date: 20061004
  Receipt Date: 20060720
  Transmission Date: 20070319
  Serious: Yes (Other)
  Sender: FDA-Public Use
  Company Number: US-BAYER-200613081BCC

PATIENT
  Age: 66 Year
  Sex: Female
  Weight: 67 kg

DRUGS (4)
  1. ASPIRIN [Suspect]
     Indication: HEADACHE
     Route: 048
     Dates: end: 19940101
  2. TYLENOL [Concomitant]
  3. PREMARIN [Concomitant]
  4. ZESTRIL [Concomitant]

REACTIONS (3)
  - ARTERIAL RUPTURE [None]
  - EPISTAXIS [None]
  - HAEMORRHAGE [None]
